FAERS Safety Report 7084144-4 (Version None)
Quarter: 2010Q4

REPORT INFORMATION
  Report Type: 
  Country: None (occurrence: None)
  Receive Date: 20101104
  Receipt Date: 20101014
  Transmission Date: 20110411
  Serious: Yes (Hospitalization, Other)
  Sender: FDA-Public Use
  Company Number: US-BAYER-201016091NA

PATIENT
  Age: 25 Year
  Sex: Female
  Weight: 75 kg

DRUGS (7)
  1. YAZ [Suspect]
     Indication: PRODUCT USED FOR UNKNOWN INDICATION
     Route: 048
  2. YASMIN [Suspect]
     Indication: PREMENSTRUAL SYNDROME
     Dosage: 3 MONTH SAMPLES RECEIVED 2001
     Route: 048
     Dates: start: 20010201, end: 20050901
  3. EXCEDRIN (MIGRAINE) [Concomitant]
     Indication: MIGRAINE
     Dosage: OTC
  4. NONSTEROIDAL ANTI-INFLAMMATORY DRUG NSAID [Concomitant]
     Indication: PRODUCT USED FOR UNKNOWN INDICATION
     Dosage: OTC (NOS)
  5. XOPENEX [Concomitant]
     Indication: MULTIPLE ALLERGIES
  6. ALBUTEROL [Concomitant]
     Indication: ASTHMA
  7. ALLEGRA [Concomitant]
     Indication: HYPERSENSITIVITY

REACTIONS (2)
  - CHOLECYSTECTOMY [None]
  - INJURY [None]
